FAERS Safety Report 13417514 (Version 3)
Quarter: 2017Q3

REPORT INFORMATION
  Report Type: Spontaneous
  Country: CA (occurrence: CA)
  Receive Date: 20170407
  Receipt Date: 20170914
  Transmission Date: 20171127
  Serious: Yes (Other)
  Sender: FDA-Public Use
  Company Number: CA-BIOMARINAP-CA-2017-113534

PATIENT
  Age: 28 Year
  Sex: Female
  Weight: 36.2 kg

DRUGS (4)
  1. EFFEXOR [Concomitant]
     Active Substance: VENLAFAXINE HYDROCHLORIDE
     Indication: PRODUCT USED FOR UNKNOWN INDICATION
  2. BENADRYL [Concomitant]
     Active Substance: DIPHENHYDRAMINE HYDROCHLORIDE
     Indication: PRODUCT USED FOR UNKNOWN INDICATION
  3. TYLENOL [Concomitant]
     Active Substance: ACETAMINOPHEN
     Indication: PRODUCT USED FOR UNKNOWN INDICATION
  4. ALDURAZYME [Suspect]
     Active Substance: LARONIDASE
     Indication: MUCOPOLYSACCHARIDOSIS I
     Dosage: 0.72 MG/KG, QW
     Route: 041
     Dates: start: 20101027

REACTIONS (10)
  - Nausea [Unknown]
  - Unresponsive to stimuli [Recovered/Resolved]
  - Productive cough [Unknown]
  - Chills [Unknown]
  - Hypophagia [Unknown]
  - Dyspnoea [Unknown]
  - Dysuria [Unknown]
  - Cyanosis [Unknown]
  - Electrocardiogram QT prolonged [Unknown]
  - Cardiac output decreased [Unknown]

NARRATIVE: CASE EVENT DATE: 20170324
